FAERS Safety Report 18710637 (Version 2)
Quarter: 2021Q1

REPORT INFORMATION
  Report Type: Spontaneous
  Country: US (occurrence: US)
  Receive Date: 20210107
  Receipt Date: 20210202
  Transmission Date: 20210419
  Serious: No
  Sender: FDA-Public Use
  Company Number: US-ASTRAZENECA-2020SF66898

PATIENT
  Sex: Female
  Weight: 74.8 kg

DRUGS (1)
  1. BYDUREON BCISE [Suspect]
     Active Substance: EXENATIDE
     Indication: DIABETES MELLITUS
     Route: 065
     Dates: start: 2019

REACTIONS (7)
  - Eye disorder [Unknown]
  - Blood glucose increased [Unknown]
  - Product dose omission issue [Unknown]
  - Weight increased [Unknown]
  - Wrong technique in device usage process [Unknown]
  - Device leakage [Unknown]
  - Device issue [Unknown]
